FAERS Safety Report 25780228 (Version 1)
Quarter: 2025Q3

REPORT INFORMATION
  Report Type: Spontaneous
  Country: US (occurrence: US)
  Receive Date: 20250909
  Receipt Date: 20250909
  Transmission Date: 20251021
  Serious: No
  Sender: SANOFI AVENTIS
  Company Number: US-SA-2025SA266300

PATIENT
  Sex: Female
  Weight: 93.18 kg

DRUGS (1)
  1. DUPIXENT [Suspect]
     Active Substance: DUPILUMAB
     Indication: Arthralgia
     Dosage: 300 MG, QOW
     Route: 058

REACTIONS (3)
  - Hypersensitivity [Unknown]
  - Injection site pain [Unknown]
  - Product use in unapproved indication [Unknown]
